FAERS Safety Report 20819909 (Version 1)
Quarter: 2022Q2

REPORT INFORMATION
  Report Type: Spontaneous
  Country: FR (occurrence: FR)
  Receive Date: 20220512
  Receipt Date: 20220512
  Transmission Date: 20220721
  Serious: Yes (Hospitalization)
  Sender: FDA-Public Use
  Company Number: None

PATIENT
  Age: 73 Year
  Sex: Male
  Weight: 80 kg

DRUGS (3)
  1. ALLOPURINOL [Suspect]
     Active Substance: ALLOPURINOL
     Indication: Gout
     Dosage: 200 MG, QD
     Route: 048
     Dates: start: 20170301, end: 20220401
  2. LINEZOLID [Suspect]
     Active Substance: LINEZOLID
     Indication: Bacteraemia
     Dosage: 600 MG, Q12H
     Route: 048
     Dates: start: 20220322, end: 20220328
  3. LINEZOLID [Suspect]
     Active Substance: LINEZOLID
     Dosage: 600 MG, QD
     Route: 041
     Dates: start: 20220329, end: 20220403

REACTIONS (4)
  - Confusional state [Recovered/Resolved]
  - Rash erythematous [Not Recovered/Not Resolved]
  - Anaemia [Recovering/Resolving]
  - Thrombocytopenia [Recovering/Resolving]

NARRATIVE: CASE EVENT DATE: 20220328
